FAERS Safety Report 8195649-7 (Version None)
Quarter: 2012Q1

REPORT INFORMATION
  Report Type: 
  Country: None (occurrence: None)
  Receive Date: 20120308
  Receipt Date: 20120301
  Transmission Date: 20120608
  Serious: Yes (Death, Other)
  Sender: FDA-Public Use
  Company Number: AU-ROCHE-1044446

PATIENT
  Sex: Female
  Weight: 72 kg

DRUGS (4)
  1. MABTHERA [Suspect]
     Indication: RHEUMATOID ARTHRITIS
     Dates: start: 20110112, end: 20110127
  2. MABTHERA [Suspect]
     Dates: start: 20110725, end: 20110808
  3. METHOTREXATE [Concomitant]
     Indication: RHEUMATOID ARTHRITIS
     Dates: start: 20030501
  4. HYDROXYCHLOROQUINE SULFATE [Concomitant]
     Indication: RHEUMATOID ARTHRITIS
     Dates: start: 20080401

REACTIONS (5)
  - CONFUSIONAL STATE [None]
  - NEOPLASM [None]
  - DIABETES INSIPIDUS [None]
  - DEATH [None]
  - BREAST CANCER [None]
